FAERS Safety Report 13969094 (Version 1)
Quarter: 2017Q3

REPORT INFORMATION
  Report Type: Spontaneous
  Country: US (occurrence: US)
  Receive Date: 20170914
  Receipt Date: 20170914
  Transmission Date: 20171128
  Serious: Yes (Other)
  Sender: FDA-Public Use
  Company Number: US-TEVA-805046USA

PATIENT
  Sex: Female

DRUGS (1)
  1. PROAIR HFA [Suspect]
     Active Substance: ALBUTEROL SULFATE
     Indication: BRONCHIAL IRRITATION
     Dosage: TWO PUFFS FOUR TO SIX TIMES AS NEEDED
     Dates: start: 20170901

REACTIONS (5)
  - Pulmonary congestion [Not Recovered/Not Resolved]
  - Haemoptysis [Recovered/Resolved]
  - Productive cough [Not Recovered/Not Resolved]
  - Device malfunction [Unknown]
  - Drug ineffective [Unknown]

NARRATIVE: CASE EVENT DATE: 20170904
